FAERS Safety Report 23930144 (Version 1)
Quarter: 2024Q2

REPORT INFORMATION
  Report Type: Spontaneous
  Country: US (occurrence: None)
  Receive Date: 20240601
  Receipt Date: 20240601
  Transmission Date: 20240716
  Serious: No
  Sender: FDA-Public Use
  Company Number: 2024A123064

PATIENT
  Sex: Female

DRUGS (1)
  1. IMFINZI [Suspect]
     Active Substance: DURVALUMAB
     Route: 042

REACTIONS (3)
  - Hypothyroidism [Unknown]
  - Liver function test increased [Unknown]
  - Product administration error [Unknown]

NARRATIVE: CASE EVENT DATE: 20240522
